FAERS Safety Report 24651931 (Version 1)
Quarter: 2024Q4

REPORT INFORMATION
  Report Type: Spontaneous
  Country: AU (occurrence: AU)
  Receive Date: 20241122
  Receipt Date: 20241122
  Transmission Date: 20250115
  Serious: Yes (Other)
  Sender: SANDOZ
  Company Number: AU-002147023-PHHY2014AU100707

PATIENT
  Sex: Female

DRUGS (4)
  1. CILOXAN [Suspect]
     Active Substance: CIPROFLOXACIN HYDROCHLORIDE
     Indication: Product used for unknown indication
     Dosage: UNK UKN, UNK
     Route: 065
  2. LUCENTIS [Suspect]
     Active Substance: RANIBIZUMAB
     Indication: Product used for unknown indication
     Dosage: UNK UKN, UNK
     Dates: start: 2009
  3. LUCENTIS [Suspect]
     Active Substance: RANIBIZUMAB
     Dosage: UNK UKN, UNK
     Dates: start: 20131207
  4. LUCENTIS [Suspect]
     Active Substance: RANIBIZUMAB
     Dosage: UNK UKN, UNK
     Dates: start: 20140725

REACTIONS (16)
  - Eye inflammation [Recovering/Resolving]
  - Intraocular pressure decreased [Unknown]
  - Corneal dystrophy [Unknown]
  - Intraocular pressure increased [Unknown]
  - Iridocyclitis [Unknown]
  - Cataract [Unknown]
  - Vitreous detachment [Unknown]
  - Anterior chamber cell [Unknown]
  - Eye disorder [Unknown]
  - Corneal disorder [Unknown]
  - Retinal disorder [Unknown]
  - Eye pain [Unknown]
  - Photophobia [Unknown]
  - Lacrimation increased [Unknown]
  - Visual acuity reduced [Unknown]
  - Eye irritation [Unknown]

NARRATIVE: CASE EVENT DATE: 20090101
